FAERS Safety Report 10752079 (Version 2)
Quarter: 2015Q1

REPORT INFORMATION
  Report Type: Spontaneous
  Country: US (occurrence: US)
  Receive Date: 20150130
  Receipt Date: 20150205
  Transmission Date: 20150721
  Serious: No
  Sender: FDA-Public Use
  Company Number: US-TEVA-537049USA

PATIENT
  Age: 33 Year
  Sex: Female
  Weight: 55 kg

DRUGS (3)
  1. COPAXONE [Suspect]
     Active Substance: GLATIRAMER ACETATE
     Indication: CENTRAL NERVOUS SYSTEM INFLAMMATION
     Dates: end: 2014
  2. GLYCOPYRROLATE. [Concomitant]
     Active Substance: GLYCOPYRROLATE
     Indication: SALIVARY HYPERSECRETION
     Dosage: 1 MILLIGRAM DAILY;
     Route: 048
  3. ZANTAC [Concomitant]
     Active Substance: RANITIDINE HYDROCHLORIDE
     Indication: PRODUCT USED FOR UNKNOWN INDICATION

REACTIONS (4)
  - Product use issue [Unknown]
  - Ecchymosis [Recovered/Resolved]
  - Urticaria [Recovered/Resolved]
  - Induration [Recovered/Resolved]

NARRATIVE: CASE EVENT DATE: 2014
